FAERS Safety Report 24137979 (Version 1)
Quarter: 2024Q3

REPORT INFORMATION
  Report Type: Spontaneous
  Country: US (occurrence: US)
  Receive Date: 20240725
  Receipt Date: 20240725
  Transmission Date: 20241017
  Serious: Yes (Hospitalization, Other)
  Sender: GLAXOSMITHKLINE
  Company Number: US-GSK-US2024090807

PATIENT

DRUGS (1)
  1. NUCALA [Suspect]
     Active Substance: MEPOLIZUMAB
     Indication: Hypereosinophilic syndrome
     Dosage: UNK
     Dates: start: 202108

REACTIONS (2)
  - Fungal abscess central nervous system [Not Recovered/Not Resolved]
  - Mental status changes [Unknown]

NARRATIVE: CASE EVENT DATE: 20240501
